FAERS Safety Report 10053414 (Version 3)
Quarter: 2014Q2

REPORT INFORMATION
  Report Type: Spontaneous
  Country: JP (occurrence: JP)
  Receive Date: 20140402
  Receipt Date: 20140522
  Transmission Date: 20141212
  Serious: Yes (Hospitalization, Other)
  Sender: FDA-Public Use
  Company Number: JP-ASTRAZENECA-2014SE19502

PATIENT
  Age: 75 Year
  Sex: Female
  Weight: 48 kg

DRUGS (8)
  1. CRESTOR [Suspect]
     Indication: DYSLIPIDAEMIA
     Route: 048
     Dates: end: 20140311
  2. ROIRUKKU (OVER-THE COUNTER CHINESE HERBAL MEDICINES) [Suspect]
     Dosage: DOSE UNKNOWN
     Route: 048
     Dates: start: 201401, end: 20140312
  3. ZOLPIDEM TARTRATE [Concomitant]
     Indication: INSOMNIA
     Route: 048
     Dates: end: 20140311
  4. TENORMIN [Concomitant]
     Route: 048
  5. PLAVIX [Concomitant]
     Route: 048
  6. BLOPRESS [Concomitant]
     Indication: HYPERTENSION
     Route: 048
  7. AMLODIPINE BESILATE [Concomitant]
     Indication: HYPERTENSION
     Route: 048
  8. FORTEO [Concomitant]
     Indication: OSTEOPOROSIS
     Route: 058

REACTIONS (5)
  - Gastroenteritis [Not Recovered/Not Resolved]
  - Rhabdomyolysis [Recovering/Resolving]
  - Pleural effusion [Recovering/Resolving]
  - Alanine aminotransferase increased [Recovering/Resolving]
  - Aspartate aminotransferase increased [Recovering/Resolving]
